FAERS Safety Report 6533865-8 (Version None)
Quarter: 2010Q1

REPORT INFORMATION
  Report Type: 
  Country: None (occurrence: None)
  Receive Date: 20100111
  Receipt Date: 20090923
  Transmission Date: 20100710
  Serious: No
  Sender: FDA-Public Use
  Company Number: US-ABBOTT-09P-163-0599168-00

PATIENT
  Sex: Female

DRUGS (13)
  1. VICODIN [Suspect]
     Indication: PAIN
  2. PREVACID [Suspect]
     Indication: DRUG USE FOR UNKNOWN INDICATION
  3. CELEBREX [Suspect]
     Indication: DRUG USE FOR UNKNOWN INDICATION
  4. NEURONTIN [Suspect]
     Indication: DRUG USE FOR UNKNOWN INDICATION
  5. LYRICA [Concomitant]
     Indication: DRUG USE FOR UNKNOWN INDICATION
  6. CYMBALTA [Concomitant]
     Indication: DRUG USE FOR UNKNOWN INDICATION
  7. PROPRANOLOL [Concomitant]
     Indication: DRUG USE FOR UNKNOWN INDICATION
  8. XANAX [Concomitant]
     Indication: DRUG USE FOR UNKNOWN INDICATION
  9. DARVOCET-N 100 [Concomitant]
     Indication: DRUG USE FOR UNKNOWN INDICATION
  10. PREMARIN [Concomitant]
     Indication: DRUG USE FOR UNKNOWN INDICATION
  11. ZYRTEC [Concomitant]
     Indication: DRUG USE FOR UNKNOWN INDICATION
  12. CREON [Concomitant]
     Indication: DRUG USE FOR UNKNOWN INDICATION
  13. PROTONIX [Concomitant]
     Indication: DRUG USE FOR UNKNOWN INDICATION

REACTIONS (1)
  - CHEST PAIN [None]
